FAERS Safety Report 16143370 (Version 3)
Quarter: 2019Q2

REPORT INFORMATION
  Report Type: Spontaneous
  Country: US (occurrence: US)
  Receive Date: 20190401
  Receipt Date: 20190505
  Transmission Date: 20190711
  Serious: No
  Sender: FDA-Public Use
  Company Number: US-009507513-1903USA011445

PATIENT
  Age: 27 Year
  Sex: Female
  Weight: 52.52 kg

DRUGS (1)
  1. NUVARING [Suspect]
     Active Substance: ETHINYL ESTRADIOL\ETONOGESTREL
     Indication: CONTRACEPTION
     Dosage: INSERTED 3 WEEKS AND OFF 1 WEEK
     Route: 067
     Dates: start: 201806

REACTIONS (7)
  - Inappropriate schedule of product administration [Unknown]
  - Product quality issue [Unknown]
  - Device expulsion [Recovered/Resolved]
  - Inappropriate schedule of product administration [Unknown]
  - Weight increased [Unknown]
  - Device expulsion [Unknown]
  - Accidental underdose [Unknown]

NARRATIVE: CASE EVENT DATE: 2019
